FAERS Safety Report 5190271-9 (Version None)
Quarter: 2006Q4

REPORT INFORMATION
  Report Type: 
  Country: None (occurrence: None)
  Receive Date: 20061222
  Receipt Date: 20060606
  Transmission Date: 20070319
  Serious: No
  Sender: FDA-Public Use
  Company Number: US-AMGEN-US181949

PATIENT
  Sex: Male

DRUGS (2)
  1. ARANESP [Suspect]
     Indication: DIALYSIS
     Route: 065
     Dates: start: 20060501
  2. IRON [Concomitant]
     Route: 065

REACTIONS (2)
  - CARDIOVERSION [None]
  - HAEMOGLOBIN DECREASED [None]
